FAERS Safety Report 8457128-9 (Version None)
Quarter: 2012Q2

REPORT INFORMATION
  Report Type: 
  Country: None (occurrence: None)
  Receive Date: 20120614
  Receipt Date: 20120529
  Transmission Date: 20120825
  Serious: Yes (Hospitalization)
  Sender: FDA-Public Use
  Company Number: INT_00078_2012

PATIENT
  Age: 84 Year

DRUGS (1)
  1. CEFEPIME [Suspect]
     Indication: INFECTION
     Dosage: (2 G 4D)

REACTIONS (4)
  - OVERDOSE [None]
  - NEUROTOXICITY [None]
  - SOMNOLENCE [None]
  - CLONUS [None]
